FAERS Safety Report 14075295 (Version 5)
Quarter: 2018Q2

REPORT INFORMATION
  Report Type: Spontaneous
  Country: CO (occurrence: CO)
  Receive Date: 20171011
  Receipt Date: 20180524
  Transmission Date: 20180711
  Serious: Yes (Other)
  Sender: FDA-Public Use
  Company Number: CO-AMGEN-COLSP2017125470

PATIENT
  Age: 67 Year
  Sex: Female

DRUGS (2)
  1. ENBREL [Suspect]
     Active Substance: ETANERCEPT
     Indication: RHEUMATOID ARTHRITIS
     Dosage: 50 MG, WEEKLY
     Route: 058
     Dates: start: 2012, end: 201711
  2. METOTREXATE [Concomitant]
     Active Substance: METHOTREXATE SODIUM
     Indication: RHEUMATOID ARTHRITIS
     Dosage: 4 DF, EVERY 8 DAYS
     Route: 048
     Dates: start: 2012

REACTIONS (13)
  - Glaucoma [Unknown]
  - Vomiting [Recovering/Resolving]
  - Viral infection [Recovering/Resolving]
  - Dizziness [Recovering/Resolving]
  - Cataract [Unknown]
  - Arthritis [Not Recovered/Not Resolved]
  - Diarrhoea [Recovering/Resolving]
  - Swelling [Not Recovered/Not Resolved]
  - Joint swelling [Recovering/Resolving]
  - Visual impairment [Not Recovered/Not Resolved]
  - Pyrexia [Recovering/Resolving]
  - Pain [Not Recovered/Not Resolved]
  - Gait inability [Not Recovered/Not Resolved]

NARRATIVE: CASE EVENT DATE: 2013
